FAERS Safety Report 7797291-6 (Version None)
Quarter: 2011Q4

REPORT INFORMATION
  Report Type: 
  Country: None (occurrence: None)
  Receive Date: 20111005
  Receipt Date: 20111004
  Transmission Date: 20120403
  Serious: Yes (Death, Hospitalization)
  Sender: FDA-Public Use
  Company Number: PHEH2011US05890

PATIENT
  Sex: Female
  Weight: 53.515 kg

DRUGS (1)
  1. EXJADE [Suspect]
     Indication: THALASSAEMIA
     Dosage: 1250 MG, DAILY
     Route: 048
     Dates: start: 20090506, end: 20110706

REACTIONS (1)
  - POST PROCEDURAL COMPLICATION [None]
